FAERS Safety Report 6545871-8 (Version None)
Quarter: 2010Q1

REPORT INFORMATION
  Report Type: 
  Country: None (occurrence: None)
  Receive Date: 20100121
  Receipt Date: 20090617
  Transmission Date: 20100710
  Serious: No
  Sender: FDA-Public Use
  Company Number: US-ALLERGAN-0908384US

PATIENT
  Age: 73 Year
  Sex: Male

DRUGS (7)
  1. TAZORAC [Suspect]
     Indication: TONGUE DISCOLOURATION
     Dosage: UNK, UNKNOWN
     Route: 061
     Dates: start: 20090520
  2. POTASSIUM [Concomitant]
     Dosage: 10 MEQ, UNK
  3. NEXIUM [Concomitant]
     Dosage: 40 MG, UNK
  4. LASIX [Concomitant]
     Dosage: 40 MG, UNK
  5. CARDIZEM LA [Concomitant]
     Dosage: 240
  6. HYDROCHLOROTHIAZIDE [Concomitant]
     Dosage: 25 MG, UNK
  7. LIPITOR [Concomitant]
     Dosage: 40 MG, UNK

REACTIONS (1)
  - APHONIA [None]
